FAERS Safety Report 9028824 (Version 1)
Quarter: 2013Q1

REPORT INFORMATION
  Report Type: Report from Study
  Country: US (occurrence: US)
  Receive Date: 20130124
  Receipt Date: 20130124
  Transmission Date: 20140127
  Serious: Yes (Hospitalization, Other)
  Sender: FDA-Public Use
  Company Number: US-GENZYME-THYM-1003606

PATIENT
  Age: 42 Year
  Sex: Male
  Weight: 69.76 kg

DRUGS (30)
  1. THYMOGLOBULIN [Suspect]
     Indication: KIDNEY TRANSPLANT REJECTION
     Dosage: UNK (IN STUDY GROUP B)
     Route: 065
     Dates: start: 20110616, end: 20110624
  2. RITUXIMAB [Suspect]
     Indication: KIDNEY TRANSPLANT REJECTION
     Dosage: UNK (IN STUDY GROUP B)
     Route: 065
     Dates: start: 20110616, end: 20110624
  3. COREG [Concomitant]
     Indication: HYPERTENSION
     Dosage: 12.5 MG, BID
     Route: 048
     Dates: start: 20110706, end: 20110708
  4. DIAZEPAM [Concomitant]
     Indication: ANXIETY
     Dosage: 5 MG, TID
     Route: 048
     Dates: start: 20100617, end: 20110826
  5. COLACE [Concomitant]
     Indication: PRODUCT USED FOR UNKNOWN INDICATION
     Dosage: 5 MG, TID
     Route: 048
     Dates: start: 20110706, end: 20110708
  6. DOXAZOSIN MESILATE [Concomitant]
     Indication: HYPERTENSION
     Dosage: 8 MG, TID
     Route: 048
  7. NEXIUM [Concomitant]
     Indication: PRODUCT USED FOR UNKNOWN INDICATION
     Dosage: 40 MG, QOD (IN MORNING)
     Route: 048
  8. LANTUS [Concomitant]
     Indication: TYPE 1 DIABETES MELLITUS
     Dosage: 10 U, UNK (EVERY MORNING)
     Route: 058
  9. LANTUS [Concomitant]
     Dosage: 6 U, UNK (AT BEDTIME)
     Route: 058
  10. INSULIN LISPRO [Concomitant]
     Indication: TYPE 1 DIABETES MELLITUS
     Dosage: UNK (SLIDING SCALE, 1 DISPENSED)
     Route: 058
     Dates: end: 20110708
  11. NYSTATIN [Concomitant]
     Indication: PRODUCT USED FOR UNKNOWN INDICATION
     Dosage: 5 ML, TID
     Route: 048
  12. PREDNISOLONE [Concomitant]
     Indication: PRODUCT USED FOR UNKNOWN INDICATION
     Dosage: 20 MG, QD
     Route: 048
  13. BACTRIM [Concomitant]
     Indication: HYPERKALAEMIA
     Dosage: UNK
     Route: 048
     Dates: start: 20110606, end: 20110708
  14. PROGRAF [Concomitant]
     Indication: PRODUCT USED FOR UNKNOWN INDICATION
     Dosage: 4 MG, BID
     Route: 048
     Dates: start: 20110706, end: 20110708
  15. AMBIEN CR [Concomitant]
     Indication: INSOMNIA
     Dosage: 12.5 MG, QD (AT BED TIME)
     Route: 048
  16. TYLENOL [Concomitant]
     Indication: PRODUCT USED FOR UNKNOWN INDICATION
     Dosage: 650 MG, ONCE
     Route: 048
     Dates: start: 20110706, end: 20110706
  17. ALBUMIN HUMAN [Concomitant]
     Indication: PRODUCT USED FOR UNKNOWN INDICATION
     Dosage: 225 G, ONCE (ON HEMODIALYSIS)
     Route: 042
     Dates: start: 20110706, end: 20110706
  18. SODIUM BICARBONATE [Concomitant]
     Indication: HYPERKALAEMIA
     Dosage: 650 MG, BID
     Route: 048
     Dates: start: 20110705
  19. SODIUM BICARBONATE [Concomitant]
     Indication: ACIDOSIS
  20. BENADRYL [Concomitant]
     Indication: PRODUCT USED FOR UNKNOWN INDICATION
     Dosage: 25 MG, ONCE
     Route: 048
     Dates: start: 20110706, end: 20110706
  21. SOLU-MEDROL [Concomitant]
     Indication: PRODUCT USED FOR UNKNOWN INDICATION
     Dosage: 20 MG, Q12HR
     Route: 042
     Dates: start: 20110705, end: 20110706
  22. KAYEXALATE [Concomitant]
     Indication: HYPERKALAEMIA
  23. COLECALCIFEROL [Concomitant]
     Indication: PRODUCT USED FOR UNKNOWN INDICATION
     Dosage: 1000 U, QD
     Route: 065
  24. MACROBID [Concomitant]
     Indication: PRODUCT USED FOR UNKNOWN INDICATION
     Dosage: UNK
     Route: 065
  25. SENSIPAR [Concomitant]
     Indication: RENAL OSTEODYSTROPHY
     Dosage: UNK
     Route: 065
     Dates: start: 20110820, end: 20110826
  26. PENTAMIDINE [Concomitant]
     Indication: PRODUCT USED FOR UNKNOWN INDICATION
     Dosage: 1000 MG, PER INHALATION MONTHLY
     Route: 065
  27. DOCUSATE SODIUM [Concomitant]
     Indication: CONSTIPATION
     Dosage: 100 MG, QD, AS NEEDED
     Route: 065
  28. PEPCID [Concomitant]
     Indication: PRODUCT USED FOR UNKNOWN INDICATION
     Dosage: UNK
     Route: 065
  29. LEVOFLOXACIN [Concomitant]
     Indication: PROPHYLAXIS
     Dosage: UNK
     Route: 065
  30. LASIX [Concomitant]
     Indication: HYPERKALAEMIA
     Dosage: 20 MG, ONCE
     Route: 042
     Dates: start: 20110705, end: 20110708

REACTIONS (7)
  - Renal tubular disorder [Unknown]
  - Febrile neutropenia [Recovered/Resolved]
  - Thrombocytopenia [Unknown]
  - Staphylococcal bacteraemia [Recovered/Resolved]
  - Urinary tract infection [Recovered/Resolved]
  - Upper respiratory tract infection [Recovered/Resolved]
  - Umbilical hernia, obstructive [Recovered/Resolved]
